FAERS Safety Report 15396122 (Version 1)
Quarter: 2018Q3

REPORT INFORMATION
  Report Type: Spontaneous
  Country: GB (occurrence: GB)
  Receive Date: 20180918
  Receipt Date: 20180918
  Transmission Date: 20181010
  Serious: Yes (Life-Threatening, Hospitalization, Other)
  Sender: FDA-Public Use
  Company Number: GB-AUROBINDO-08-AUR-05612

PATIENT
  Age: 73 Year
  Sex: Male

DRUGS (1)
  1. METFORMIN [Suspect]
     Active Substance: METFORMIN HYDROCHLORIDE
     Indication: TYPE 2 DIABETES MELLITUS
     Dosage: UNK 2 DAYS, 1700 ? 2000 MG
     Route: 048

REACTIONS (5)
  - Lactic acidosis [Recovered/Resolved]
  - Acute kidney injury [Unknown]
  - Hypotension [Unknown]
  - Confusional state [Unknown]
  - Vomiting [Recovering/Resolving]
